FAERS Safety Report 9783686 (Version 1)
Quarter: 2013Q4

REPORT INFORMATION
  Report Type: Spontaneous
  Country: US (occurrence: US)
  Receive Date: 20131226
  Receipt Date: 20131226
  Transmission Date: 20140711
  Serious: Yes (Other)
  Sender: FDA-Public Use
  Company Number: US-BAYER-2013-154610

PATIENT
  Age: 27 Year
  Sex: Female
  Weight: 67.12 kg

DRUGS (2)
  1. ALKA-SELTZER PLUS COLD + FLU FORMULA DAY/NIGHT LIQUID GEL COMBI DA [Suspect]
     Indication: NASOPHARYNGITIS
     Dosage: 2 DF, OTHER FREQUENCY
     Route: 048
     Dates: start: 20131214, end: 20131215
  2. ALKA-SELTZER PLUS COLD + FLU FORMULA DAY/NIGHT LIQUID GEL COMBI NI [Suspect]
     Indication: NASOPHARYNGITIS
     Dosage: 2 DF, OTHER FREQUENCY
     Route: 048
     Dates: start: 20131214, end: 20131215

REACTIONS (1)
  - Hallucination [Recovered/Resolved]
